FAERS Safety Report 7202754-8 (Version None)
Quarter: 2010Q4

REPORT INFORMATION
  Report Type: 
  Country: None (occurrence: None)
  Receive Date: 20101229
  Receipt Date: 20101227
  Transmission Date: 20110411
  Serious: Yes (Life-Threatening)
  Sender: FDA-Public Use
  Company Number: JP-BAYER-200912954BYL

PATIENT
  Age: 70 Year
  Sex: Male
  Weight: 45.9 kg

DRUGS (2)
  1. NEXAVAR [Suspect]
     Indication: RENAL CELL CARCINOMA
     Route: 048
     Dates: start: 20090724
  2. NEXAVAR [Suspect]
     Dosage: 400 MG, QD
     Route: 048
     Dates: start: 20090803, end: 20090808

REACTIONS (8)
  - DECREASED APPETITE [None]
  - DIARRHOEA [None]
  - EOSINOPHIL COUNT INCREASED [None]
  - ERYTHEMA MULTIFORME [None]
  - NAUSEA [None]
  - PYREXIA [None]
  - RASH [None]
  - STOMATITIS [None]
